FAERS Safety Report 9061558 (Version 1)
Quarter: 2013Q1

REPORT INFORMATION
  Report Type: Spontaneous
  Country: US (occurrence: None)
  Receive Date: 20130208
  Receipt Date: 20130208
  Transmission Date: 20140127
  Serious: Yes (Other)
  Sender: FDA-Public Use
  Company Number: None

PATIENT
  Age: 1 Month
  Sex: Female
  Weight: 4.08 kg

DRUGS (2)
  1. ENFAMIL [Suspect]
     Dates: start: 20130102, end: 20130205
  2. SIMILAC [Suspect]
     Dates: start: 20121221, end: 20130102

REACTIONS (3)
  - Flatulence [None]
  - Vomiting [None]
  - Diarrhoea [None]
